FAERS Safety Report 9625898 (Version 1)
Quarter: 2013Q3

REPORT INFORMATION
  Report Type: Spontaneous
  Country: US (occurrence: None)
  Receive Date: 20130930
  Receipt Date: 20130930
  Transmission Date: 20140515
  Serious: Yes (Hospitalization, Other)
  Sender: FDA-Public Use
  Company Number: 2013038111

PATIENT
  Sex: Female

DRUGS (1)
  1. HIZENTRA [Suspect]
     Route: 058

REACTIONS (2)
  - Lung infection [None]
  - Bronchiectasis [None]
